FAERS Safety Report 7637597-4 (Version None)
Quarter: 2011Q3

REPORT INFORMATION
  Report Type: 
  Country: None (occurrence: None)
  Receive Date: 20110726
  Receipt Date: 20110721
  Transmission Date: 20111222
  Serious: Yes (Other)
  Sender: FDA-Public Use
  Company Number: GXKR2011DE02378

PATIENT
  Age: 40 Year
  Sex: Male

DRUGS (2)
  1. RANITIDINE HYDROCHLORIDE [Suspect]
     Dosage: 75 MG, ONCE/SINGLE
     Route: 048
  2. RISPERDAL [Concomitant]
     Route: 065

REACTIONS (2)
  - PSYCHOTIC DISORDER [None]
  - EPILEPSY [None]
